FAERS Safety Report 5775112-0 (Version None)
Quarter: 2008Q2

REPORT INFORMATION
  Report Type: 
  Country: None (occurrence: None)
  Receive Date: 20080616
  Receipt Date: 20080616
  Transmission Date: 20081010
  Serious: No
  Sender: FDA-Public Use
  Company Number: None

PATIENT
  Age: 36 Year
  Sex: Female
  Weight: 121.1104 kg

DRUGS (1)
  1. YASMIN [Suspect]
     Indication: CONTRACEPTION
     Dosage: 1 ACTIVE PILL A DAY NO PLACEBO  DAILY PO
     Route: 048
     Dates: start: 20020729, end: 20080221

REACTIONS (1)
  - THYROID DISORDER [None]
